FAERS Safety Report 7075678-7 (Version None)
Quarter: 2010Q4

REPORT INFORMATION
  Report Type: 
  Country: None (occurrence: None)
  Receive Date: 20101031
  Receipt Date: 20101025
  Transmission Date: 20110411
  Serious: Yes (Other)
  Sender: FDA-Public Use
  Company Number: US-WYE-H18393610

PATIENT
  Sex: Female

DRUGS (12)
  1. PROTONIX [Suspect]
     Indication: PANCREATITIS
  2. PROTONIX [Suspect]
     Indication: GASTROOESOPHAGEAL REFLUX DISEASE
  3. ACETYLSALICYLIC ACID SRT [Concomitant]
     Dosage: UNKNOWN
  4. ADVAIR DISKUS 100/50 [Concomitant]
     Indication: ASTHMA
     Dosage: 250/50 UG, UNSPECIFIED FREQUENCY
  5. SALBUTAMOL [Concomitant]
  6. GLUCOSAMINE [Concomitant]
     Indication: ARTHRITIS
     Dosage: UNKNOWN
  7. CLONAZEPAM [Concomitant]
     Dosage: UNKNOWN
  8. NEURONTIN [Suspect]
     Indication: CONVULSION
     Dosage: UNKNOWN
  9. DILANTIN [Suspect]
     Indication: CONVULSION
     Dosage: UNKNOWN
  10. FISH OIL, HYDROGENATED [Concomitant]
     Dosage: UNKNOWN
  11. ATENOLOL [Concomitant]
  12. KEPPRA [Concomitant]
     Indication: CONVULSION

REACTIONS (3)
  - CONDITION AGGRAVATED [None]
  - CONVULSION [None]
  - DRUG EFFECT DECREASED [None]
